FAERS Safety Report 8422556 (Version 4)
Quarter: 2014Q2

REPORT INFORMATION
  Report Type: Spontaneous
  Country: US (occurrence: US)
  Receive Date: 20120223
  Receipt Date: 20140519
  Transmission Date: 20141212
  Serious: No
  Sender: FDA-Public Use
  Company Number: US-PFIZER INC-2012043389

PATIENT
  Age: 46 Year
  Sex: Female

DRUGS (25)
  1. LYRICA [Suspect]
     Indication: FIBROMYALGIA
     Dosage: 150 MG, 1X/DAY
     Route: 048
  2. LYRICA [Suspect]
     Dosage: 150 MG, 3X/DAY
     Route: 048
     Dates: start: 20090517
  3. ZITHROMAX [Suspect]
     Dosage: UNK
  4. MAG-OX [Concomitant]
     Dosage: 400 MG, 2X/DAY
  5. GUMMIES MULTIVITAMIN AND MINERAL SUPPLEMENT [Concomitant]
     Dosage: 2 DF, 2X/DAY
  6. BENADRYL [Concomitant]
     Dosage: 50 MG, AS NEEDED
  7. EPIPEN [Concomitant]
     Dosage: 0.3 MG, AS NEEDED
  8. PROMETHAZINE [Concomitant]
     Dosage: 25MG 1-2 PILLS 3X/DAY AS NEEDED
  9. REFRESH [Concomitant]
     Dosage: 3-4 TIMES DAILY AS NEEDED
  10. VENTOLIN [Concomitant]
     Dosage: 2 PUFFS EVERY 20MINS FOR 2HRS AS NEEDED
  11. VENTOLIN [Concomitant]
     Dosage: 2 DF, (2 PUFF EVERY MINUTES FOR 2 HRS) AS NEEDED
  12. VENTOLIN [Concomitant]
     Dosage: UNK, AS NEEDED (2 PUFFS B.I.D P.R.N)
  13. ALLEGRA [Concomitant]
     Dosage: 180 MG, 1X/DAY (1 TABLET - QD - AM)
  14. HYDROCODONE [Concomitant]
     Dosage: 1 DF, AS NEEDED (7.5/500MG TABLET Q. 6 HRS P.R.N.)
  15. HYDROCODONE [Concomitant]
     Dosage: 7.5/325 MG (1/2 TO 1 PILL EVERY 6 HRS)
  16. HYDROCODONE [Concomitant]
     Dosage: UNK, AS NEEDED (7.5 / 325 MG TABLET,1 TABLET Q. 6 HRS P.R.N)
  17. VITAMIN D [Concomitant]
     Dosage: 50000 IU, 3X/DAY
  18. ZADITOR [Concomitant]
     Dosage: UNK, AS NEEDED (2 DROPS EVERY EYE TWICE DAILY AS NEEDED)
  19. ZADITOR [Concomitant]
     Dosage: 1-2 DROPS EVERY EYE TWICE DAILY
  20. ZOFRAN [Concomitant]
     Dosage: 8 MG, AS NEEDED
  21. AUGMENTIN [Concomitant]
     Dosage: 875 MG, 3X/DAY
  22. NASOCORT [Concomitant]
     Dosage: 1 DF, (29 MCG, 025%, 1 SPRAY EA NOSTRIL B.I.D. P.R.N.)
  23. SINGULAIR [Concomitant]
     Dosage: 10 MG, 1X/DAY (1 TABLET - QD - P.M.)
  24. TYLENOL [Concomitant]
     Dosage: 500 MG, AS NEEDED (PRN)
  25. NASONEX [Concomitant]
     Dosage: UNK, AS NEEDED  (29 MCG - 025%, 1 SPRAY EA. NOSTRIL - B.I.D P.R.N)

REACTIONS (3)
  - Rhinitis allergic [Unknown]
  - Fibromyalgia [Unknown]
  - Rash [Unknown]
